FAERS Safety Report 21762545 (Version 2)
Quarter: 2023Q1

REPORT INFORMATION
  Report Type: Report from Study
  Country: US (occurrence: US)
  Receive Date: 20221221
  Receipt Date: 20230220
  Transmission Date: 20230417
  Serious: Yes (Death)
  Sender: FDA-Public Use
  Company Number: US-TEVA-2022-US-2837343

PATIENT
  Age: 88 Year
  Sex: Male

DRUGS (4)
  1. TAMOXIFEN [Suspect]
     Active Substance: TAMOXIFEN
     Indication: Scrotal cancer
     Route: 065
  2. TAMOXIFEN [Suspect]
     Active Substance: TAMOXIFEN
     Indication: Sweat gland tumour
  3. ANASTROZOLE [Suspect]
     Active Substance: ANASTROZOLE
     Indication: Scrotal cancer
     Route: 065
  4. ANASTROZOLE [Suspect]
     Active Substance: ANASTROZOLE
     Indication: Sweat gland tumour

REACTIONS (1)
  - Drug ineffective [Fatal]
